FAERS Safety Report 18094718 (Version 1)
Quarter: 2020Q3

REPORT INFORMATION
  Report Type: Report from Study
  Country: None (occurrence: US)
  Receive Date: 20200731
  Receipt Date: 20200731
  Transmission Date: 20201103
  Serious: Yes (Other)
  Sender: FDA-Public Use
  Company Number: US-ABBVIE-20K-163-3459310-00

PATIENT
  Sex: Female

DRUGS (1)
  1. HUMIRA [Suspect]
     Active Substance: ADALIMUMAB
     Indication: RHEUMATOID ARTHRITIS
     Route: 058
     Dates: start: 20200616

REACTIONS (16)
  - Limb discomfort [Unknown]
  - General physical health deterioration [Unknown]
  - Musculoskeletal discomfort [Unknown]
  - Arthritis [Recovering/Resolving]
  - Depressed mood [Unknown]
  - Depression [Unknown]
  - Crying [Unknown]
  - Anxiety [Unknown]
  - Arteriosclerosis [Unknown]
  - Weight increased [Unknown]
  - Cardiomegaly [Unknown]
  - Gait disturbance [Unknown]
  - Heart rate decreased [Unknown]
  - Blood pressure increased [Unknown]
  - Musculoskeletal stiffness [Unknown]
  - Pain [Unknown]

NARRATIVE: CASE EVENT DATE: 2020
